FAERS Safety Report 21565033 (Version 1)
Quarter: 2022Q4

REPORT INFORMATION
  Report Type: Spontaneous
  Country: US (occurrence: None)
  Receive Date: 20221107
  Receipt Date: 20221107
  Transmission Date: 20230113
  Serious: No
  Sender: FDA-Public Use
  Company Number: None

PATIENT
  Age: 66 Year
  Sex: Female
  Weight: 69.4 kg

DRUGS (19)
  1. PIQRAY [Suspect]
     Active Substance: ALPELISIB
     Indication: Breast cancer
     Dosage: FREQUENCY : DAILY;?
     Route: 048
     Dates: start: 202004
  2. BUSPIRONE [Concomitant]
  3. CLINDAMYCIN [Concomitant]
  4. DEXAMETHASONE [Concomitant]
  5. DIAZEPAM [Concomitant]
  6. DIPHENOXYLATE-ATROPINE [Concomitant]
  7. GABAPENTIN [Concomitant]
  8. HYDROMORPHONE [Concomitant]
  9. HYDROXYZINE [Concomitant]
  10. KLOR-CON [Concomitant]
  11. MORPHINE [Concomitant]
  12. NYSTATIN [Concomitant]
  13. OMEPRAZOLE [Concomitant]
  14. ONDANSETRON [Concomitant]
  15. PRISTIQ [Concomitant]
  16. PROMETHAZINE [Concomitant]
  17. TEMAZEPAM [Concomitant]
  18. TIZANIDINE [Concomitant]
  19. TRIAMCINOLONE [Concomitant]

REACTIONS (1)
  - Pneumonia [None]
